FAERS Safety Report 5242031-8 (Version None)
Quarter: 2007Q1

REPORT INFORMATION
  Report Type: 
  Country: None (occurrence: None)
  Receive Date: 20070220
  Receipt Date: 20070209
  Transmission Date: 20070707
  Serious: Yes (Death, Hospitalization)
  Sender: FDA-Public Use
  Company Number: GB-PFIZER INC-2006104184

PATIENT
  Age: 77 Year
  Sex: Male

DRUGS (3)
  1. PREGABALIN [Suspect]
     Indication: NEURALGIA
     Route: 065
  2. MST [Interacting]
     Indication: PAIN
     Dosage: FREQ:UNKNOWN
     Route: 048
  3. DICLOFENAC SODIUM [Concomitant]
     Indication: PAIN
     Route: 048

REACTIONS (4)
  - CONFUSIONAL STATE [None]
  - DEATH [None]
  - DRUG INTERACTION [None]
  - TRANSIENT ISCHAEMIC ATTACK [None]
